FAERS Safety Report 5700345-9 (Version None)
Quarter: 2008Q2

REPORT INFORMATION
  Report Type: 
  Country: None (occurrence: None)
  Receive Date: 20080410
  Receipt Date: 20080328
  Transmission Date: 20081010
  Serious: Yes (Death, Hospitalization, Other)
  Sender: FDA-Public Use
  Company Number: FR-PFIZER INC-2008007569

PATIENT
  Sex: Female
  Weight: 48 kg

DRUGS (9)
  1. LYRICA [Suspect]
     Indication: NEURALGIA
     Route: 048
  2. OXYCONTIN [Interacting]
     Indication: CANCER PAIN
     Route: 048
  3. OXYNORM [Interacting]
     Indication: PAIN
  4. CORTICOSTEROIDS [Concomitant]
     Indication: PAIN
  5. EFFEXOR [Concomitant]
     Indication: DEPRESSION
     Route: 048
  6. DEXAMETHASONE [Concomitant]
     Indication: ANALGESIA
     Route: 048
  7. CACIT [Concomitant]
     Indication: OSTEOPOROSIS
     Route: 048
  8. LYSANXIA [Concomitant]
     Indication: ANXIETY
     Dosage: TEXT:10 TO 30 MILLIGRAM PER DAY-FREQ:1 TO 3 INTAKES
     Route: 048
  9. INIPOMP [Concomitant]
     Indication: GASTROOESOPHAGEAL REFLUX DISEASE
     Route: 048

REACTIONS (7)
  - BRADYPNOEA [None]
  - BRONCHIAL CARCINOMA [None]
  - DRUG INTERACTION [None]
  - MEDICATION ERROR [None]
  - OVERDOSE [None]
  - PAIN [None]
  - SOMNOLENCE [None]
